FAERS Safety Report 9473036 (Version 2)
Quarter: 2013Q3

REPORT INFORMATION
  Report Type: Spontaneous
  Country: US (occurrence: US)
  Receive Date: 20130823
  Receipt Date: 20130823
  Transmission Date: 20140515
  Serious: Yes (Hospitalization)
  Sender: FDA-Public Use
  Company Number: US-BRISTOL-MYERS SQUIBB COMPANY-17354960

PATIENT
  Age: 47 Year
  Sex: 0
  Weight: 78.91 kg

DRUGS (4)
  1. SPRYCEL [Suspect]
     Indication: ACUTE LYMPHOCYTIC LEUKAEMIA
     Dosage: 1DF=1TAB?MOUTH EVERY DAY ON DAYS 1-14 ON FIRST CYCLE ONLY
     Route: 048
     Dates: end: 20130115
  2. ATIVAN [Concomitant]
  3. BENADRYL [Concomitant]
  4. DILAUDID [Concomitant]

REACTIONS (2)
  - White blood cell count decreased [Unknown]
  - Infection [Unknown]
